FAERS Safety Report 26207286 (Version 1)
Quarter: 2025Q4

REPORT INFORMATION
  Report Type: Spontaneous
  Country: US (occurrence: US)
  Receive Date: 20251229
  Receipt Date: 20251229
  Transmission Date: 20260117
  Serious: Yes (Life-Threatening, Hospitalization, Other)
  Sender: AUROBINDO
  Company Number: US-MLMSERVICE-20251208-PI744257-00033-1

PATIENT
  Age: 88 Year
  Sex: Female

DRUGS (11)
  1. CLOPIDOGREL [Suspect]
     Active Substance: CLOPIDOGREL BISULFATE
     Indication: Acute myocardial infarction
     Dosage: 600 MILLIGRAM (DUAL ANTIPLATELET THERAPY LOADING DOSE)
     Route: 065
  2. CLOPIDOGREL [Suspect]
     Active Substance: CLOPIDOGREL BISULFATE
     Dosage: 75 MILLIGRAM, ONCE A DAY
     Route: 065
  3. OLANZAPINE [Suspect]
     Active Substance: OLANZAPINE
     Indication: Delirium
     Dosage: 5 MILLIGRAM (INTRAMUSCULAR OLANZAPINE 5 MG AT 0134 HOURS (LEFT THIGH) AND 0552 HOURS (LEFT THIGH))
  4. OLANZAPINE [Suspect]
     Active Substance: OLANZAPINE
     Indication: Agitation
     Dosage: 10 MILLIGRAM
  5. HEPARIN [Suspect]
     Active Substance: HEPARIN SODIUM
     Indication: Acute myocardial infarction
     Dosage: 60 INTERNATIONAL UNIT/KILOGRAM (BOLUS)
  6. HEPARIN [Suspect]
     Active Substance: HEPARIN SODIUM
     Dosage: 12 INTERNATIONAL UNIT/KILOGRAM, GH (INFUSION AT 12 UNITS/KG/H)
  7. ASPIRIN [Suspect]
     Active Substance: ASPIRIN
     Indication: Acute myocardial infarction
     Dosage: 324 MILLIGRAM (LOADING DOSE)
  8. ASPIRIN [Suspect]
     Active Substance: ASPIRIN
     Dosage: 81 MILLIGRAM, ONCE A DAY
     Route: 065
  9. ZIPRASIDONE [Suspect]
     Active Substance: ZIPRASIDONE
     Indication: Delirium
     Dosage: 10 MILLIGRAM (INTRAMUSCULAR ZIPRASIDONE 10 MG AT 0617HOURS (RIGHT THIGH) AND 2307 HOURS (RIGHT DELTOID).)
  10. ZIPRASIDONE [Suspect]
     Active Substance: ZIPRASIDONE
     Indication: Agitation
     Dosage: 20 MILLIGRAM
  11. DEXMEDETOMIDINE [Concomitant]
     Active Substance: DEXMEDETOMIDINE
     Indication: Agitation
     Dosage: 120 MICROGRAM (GIVEN AT 1711 HOURS)

REACTIONS (2)
  - Haematoma muscle [Recovering/Resolving]
  - Electrocardiogram QT prolonged [Unknown]
